FAERS Safety Report 8124171-9 (Version None)
Quarter: 2012Q1

REPORT INFORMATION
  Report Type: 
  Country: None (occurrence: None)
  Receive Date: 20120209
  Receipt Date: 20120201
  Transmission Date: 20120608
  Serious: Yes (Hospitalization, Other)
  Sender: FDA-Public Use
  Company Number: US-BAYER-2011-085674

PATIENT
  Age: 21 Year
  Sex: Female
  Weight: 90.703 kg

DRUGS (7)
  1. FLONASE [Concomitant]
  2. YAZ [Suspect]
     Indication: CONTRACEPTION
     Dosage: UNK
     Dates: start: 20080701, end: 20100401
  3. YAZ [Suspect]
     Indication: PREMENSTRUAL SYNDROME
  4. CLARITIN-D [Concomitant]
  5. ZITHROMAX [Concomitant]
  6. AZITHROMYCIN [Concomitant]
     Indication: BACTERIAL INFECTION
     Dosage: UNK
     Dates: start: 20090601, end: 20110101
  7. OMEPRAZOLE [Concomitant]
     Indication: ABDOMINAL PAIN
     Dosage: 40 MG, QD
     Route: 048
     Dates: start: 20090924

REACTIONS (5)
  - GALLBLADDER INJURY [None]
  - INJURY [None]
  - BILIARY DYSKINESIA [None]
  - CHOLECYSTITIS CHRONIC [None]
  - PAIN [None]
